FAERS Safety Report 9731793 (Version 1)
Quarter: 2013Q4

REPORT INFORMATION
  Report Type: Spontaneous
  Country: US (occurrence: None)
  Receive Date: 20131203
  Receipt Date: 20131203
  Transmission Date: 20140711
  Serious: Yes (Death, Hospitalization)
  Sender: FDA-Public Use
  Company Number: US-ALKEM-000271

PATIENT
  Age: 24 Year
  Sex: Female

DRUGS (1)
  1. METFORMIN (METFORMIN) [Suspect]

REACTIONS (10)
  - Hypotension [None]
  - Acidosis [None]
  - Mental status changes [None]
  - Vomiting [None]
  - Stress [None]
  - Dehydration [None]
  - Blood creatinine increased [None]
  - Blood glucose decreased [None]
  - Haemodialysis [None]
  - General physical health deterioration [None]
